FAERS Safety Report 23424250 (Version 1)
Quarter: 2024Q1

REPORT INFORMATION
  Report Type: Spontaneous
  Country: US (occurrence: US)
  Receive Date: 20240120
  Receipt Date: 20240120
  Transmission Date: 20240409
  Serious: Yes (Death, Other)
  Sender: FDA-Public Use
  Company Number: US-AMGEN-USASP2024011227

PATIENT

DRUGS (16)
  1. BLINATUMOMAB [Suspect]
     Active Substance: BLINATUMOMAB
     Indication: Acute lymphocytic leukaemia
     Dosage: UNK
     Route: 065
  2. RITUXIMAB [Suspect]
     Active Substance: RITUXIMAB
     Indication: Acute lymphocytic leukaemia
     Dosage: 375 MILLIGRAM/M^2 (2 DOSES ADMINISTERED PER CYCLE, UP TO 8 TOTAL DOSES)
     Route: 042
  3. PEGFILGRASTIM [Suspect]
     Active Substance: PEGFILGRASTIM
     Indication: Prophylaxis
     Dosage: 6 MILLIGRAM
     Route: 058
  4. VENETOCLAX [Concomitant]
     Active Substance: VENETOCLAX
     Indication: Acute lymphocytic leukaemia
     Dosage: 200 MILLIGRAM, QD (ON DAYS 1-14 IN CYCLE 1 AND ON DAYS 1-7 IN CONSOLIDATION CYCLES)
     Route: 048
  5. VENETOCLAX [Concomitant]
     Active Substance: VENETOCLAX
     Dosage: 400 MILLIGRAM (ON DAYS 1-14 IN CYCLE 1 AND ON DAYS 1-7 IN CONSOLIDATION CYCLES)
     Route: 048
  6. INOTUZUMAB OZOGAMICIN [Concomitant]
     Active Substance: INOTUZUMAB OZOGAMICIN
     Indication: Acute lymphocytic leukaemia
     Dosage: UNK
     Route: 065
  7. CYCLOPHOSPHAMIDE [Concomitant]
     Active Substance: CYCLOPHOSPHAMIDE
     Dosage: UNK
     Route: 065
  8. VINCRISTINE [Concomitant]
     Active Substance: VINCRISTINE
     Dosage: 2 MILLIGRAM (ON DAY 1)
     Route: 042
  9. CYTARABINE [Concomitant]
     Active Substance: CYTARABINE
     Dosage: 100 MILLIGRAM
     Route: 029
  10. METHOTREXATE [Concomitant]
     Active Substance: METHOTREXATE
     Dosage: 12 MILLIGRAM
     Route: 029
  11. DEXAMETHASONE [Concomitant]
     Active Substance: DEXAMETHASONE
  12. NELARABINE [Concomitant]
     Active Substance: NELARABINE
     Dosage: 650 MILLIGRAM/M^2 (ON DAYS 1-5)
     Route: 042
  13. PEG/L-ASPARAGINASE [Concomitant]
     Active Substance: PEGASPARGASE
     Dosage: 1500 INTERNATIONAL UNIT/M^2 ((CAPPED AT 3750 IU)
     Route: 065
  14. PEG/L-ASPARAGINASE [Concomitant]
     Active Substance: PEGASPARGASE
     Dosage: 1000 INTERNATIONAL UNIT/M^2 ((CAPPED AT 2000 IU)
     Route: 065
  15. PREDNISONE [Concomitant]
     Active Substance: PREDNISONE
     Dosage: 50 MILLIGRAM (ON DAYS 1-5)
     Route: 048
  16. POSACONAZOLE [Concomitant]
     Active Substance: POSACONAZOLE
     Dosage: UNK
     Route: 065

REACTIONS (44)
  - Death [Fatal]
  - Fungal infection [Fatal]
  - Acute lymphocytic leukaemia [Unknown]
  - Myelosuppression [Unknown]
  - Embolism [Unknown]
  - Device related bacteraemia [Unknown]
  - Hyperkalaemia [Unknown]
  - Pneumonia bacterial [Unknown]
  - Infection [Unknown]
  - Pneumonia fungal [Unknown]
  - Pneumonia [Unknown]
  - Neutropenia [Unknown]
  - Sepsis [Unknown]
  - Febrile neutropenia [Unknown]
  - Tumour lysis syndrome [Unknown]
  - Hyperbilirubinaemia [Unknown]
  - Thrombocytopenia [Unknown]
  - Hepatitis A [Unknown]
  - Stomatitis [Unknown]
  - Contusion [Unknown]
  - Muscular weakness [Unknown]
  - Fatigue [Unknown]
  - Hyponatraemia [Unknown]
  - Abdominal distension [Unknown]
  - Arthralgia [Unknown]
  - Anxiety [Unknown]
  - Dysphagia [Unknown]
  - Chills [Unknown]
  - Dizziness [Unknown]
  - Epistaxis [Unknown]
  - Insomnia [Unknown]
  - Cough [Unknown]
  - Skin infection [Unknown]
  - Constipation [Unknown]
  - Diarrhoea [Unknown]
  - Myalgia [Unknown]
  - Bone pain [Unknown]
  - Decreased appetite [Unknown]
  - Soft tissue infection [Unknown]
  - Depression [Unknown]
  - Abdominal pain [Unknown]
  - Upper respiratory tract infection [Unknown]
  - Therapy partial responder [Unknown]
  - Alanine aminotransferase increased [Unknown]
